FAERS Safety Report 8390419 (Version 3)
Quarter: 2014Q2

REPORT INFORMATION
  Report Type: Spontaneous
  Country: US (occurrence: US)
  Receive Date: 20120203
  Receipt Date: 20140404
  Transmission Date: 20141212
  Serious: No
  Sender: FDA-Public Use
  Company Number: US-ASTRAZENECA-2012SE06254

PATIENT
  Age: 30 Year
  Sex: Male
  Weight: 114.3 kg

DRUGS (4)
  1. NEXIUM [Suspect]
     Indication: GASTROOESOPHAGEAL REFLUX DISEASE
     Route: 048
     Dates: start: 2010, end: 20140317
  2. LYRICA [Concomitant]
     Indication: FIBROMYALGIA
     Route: 048
     Dates: start: 2009
  3. PERCOCET [Concomitant]
     Indication: BACK PAIN
     Dosage: 7.5/3.25 MG TID
     Route: 048
     Dates: start: 2003
  4. XANAX [Concomitant]
     Indication: ANXIETY
     Route: 048
     Dates: start: 2003

REACTIONS (2)
  - Off label use [Unknown]
  - Drug dose omission [Unknown]
